FAERS Safety Report 6146651-8 (Version None)
Quarter: 2009Q2

REPORT INFORMATION
  Report Type: 
  Country: None (occurrence: None)
  Receive Date: 20090403
  Receipt Date: 20090403
  Transmission Date: 20091009
  Serious: No
  Sender: FDA-Public Use
  Company Number: None

PATIENT
  Age: 83 Year
  Sex: Male
  Weight: 69.5 kg

DRUGS (3)
  1. ASPIRIN [Suspect]
     Indication: CARDIOVASCULAR DISORDER
     Dosage: 81 MG EVERY DAY PO
     Route: 048
     Dates: start: 20071005, end: 20090403
  2. ASPIRIN [Suspect]
     Indication: CORONARY ARTERY DISEASE
     Dosage: 81 MG EVERY DAY PO
     Route: 048
     Dates: start: 20071005, end: 20090403
  3. ASPIRIN [Suspect]
     Indication: SURGERY
     Dosage: 81 MG EVERY DAY PO
     Route: 048
     Dates: start: 20071005, end: 20090403

REACTIONS (1)
  - GASTRIC HAEMORRHAGE [None]
